FAERS Safety Report 11271013 (Version 2)
Quarter: 2015Q3

REPORT INFORMATION
  Report Type: Other
  Country: DE (occurrence: DE)
  Receive Date: 20150714
  Receipt Date: 20150723
  Transmission Date: 20151125
  Serious: Yes (Other)
  Sender: FDA-Public Use
  Company Number: DE-MYLANLABS-2015M1022703

PATIENT

DRUGS (1)
  1. FASTJEKT [Suspect]
     Active Substance: EPINEPHRINE
     Indication: FOOD ALLERGY

REACTIONS (4)
  - Injection site pain [Recovered/Resolved]
  - Lividity [Recovered/Resolved]
  - Drug administered at inappropriate site [Recovered/Resolved]
  - Injection site swelling [Recovered/Resolved]
